FAERS Safety Report 19036041 (Version 1)
Quarter: 2021Q1

REPORT INFORMATION
  Report Type: Spontaneous
  Country: US (occurrence: US)
  Receive Date: 20210319
  Receipt Date: 20210319
  Transmission Date: 20210420
  Serious: Yes (Other)
  Sender: FDA-Public Use
  Company Number: None

PATIENT
  Age: 87 Year
  Sex: Male
  Weight: 83.46 kg

DRUGS (12)
  1. ATORVASTARN [Concomitant]
  2. NATURE MADE VITAMIN C [Concomitant]
  3. TUMS [Concomitant]
     Active Substance: CALCIUM CARBONATE
  4. LANSOPRAZOLE DR 30 MG CAP [Concomitant]
  5. METOPROLOL SUCCINATE ER 24 HR 50 MG TAB 2 P22 [Concomitant]
  6. LUTEIN BLUE ER  8 CLOPIDOGREL 75 MG TAB 2 P21 [Concomitant]
  7. TAMSULOSIN [Concomitant]
     Active Substance: TAMSULOSIN
  8. MIRALAX [Concomitant]
     Active Substance: POLYETHYLENE GLYCOL 3350
  9. LEVOTHYROXINE SODIUM .137 MG [Concomitant]
  10. LOSARTAN POYASSIUM 50 MG TAS [Concomitant]
  11. COQ?10 400MG [Concomitant]
  12. OXYBUTYNIN CHLORIDE ER [Suspect]
     Active Substance: OXYBUTYNIN CHLORIDE
     Indication: URINARY INCONTINENCE
     Dosage: ?          QUANTITY:1 DF DOSAGE FORM;?
     Route: 048

REACTIONS (1)
  - Cough [None]
